FAERS Safety Report 9146135 (Version 1)
Quarter: 2013Q1

REPORT INFORMATION
  Report Type: Spontaneous
  Country: US (occurrence: None)
  Receive Date: 20130227
  Receipt Date: 20130227
  Transmission Date: 20140127
  Serious: Yes (Hospitalization)
  Sender: FDA-Public Use
  Company Number: None

PATIENT
  Sex: Male
  Weight: 74.5 kg

DRUGS (3)
  1. IRINOTECAN [Suspect]
     Dosage: 90 MG PER M^2 Q2 WEEKS IV
     Route: 042
     Dates: start: 20130125
  2. OXALIPLATIN [Suspect]
     Dosage: 60 MG PER M^2 Q 2 W IV
     Route: 042
     Dates: start: 20130208
  3. CETUXIMAB [Suspect]
     Route: 042
     Dates: start: 20130208

REACTIONS (9)
  - Fatigue [None]
  - Dehydration [None]
  - Asthenia [None]
  - Decreased appetite [None]
  - Nausea [None]
  - Dizziness postural [None]
  - Dyspnoea exertional [None]
  - Asthenia [None]
  - Haemoglobin decreased [None]
